FAERS Safety Report 5050215-7 (Version None)
Quarter: 2006Q3

REPORT INFORMATION
  Report Type: 
  Country: None (occurrence: None)
  Receive Date: 20060713
  Receipt Date: 20051004
  Transmission Date: 20061208
  Serious: No
  Sender: FDA-Public Use
  Company Number: US-BRISTOL-MYERS SQUIBB COMPANY-13131354

PATIENT
  Age: 55 Year
  Sex: Female
  Weight: 91 kg

DRUGS (3)
  1. SINEMET CR [Suspect]
     Dates: start: 20050901
  2. FLUOXETINE HCL [Concomitant]
  3. CLONAZEPAM [Concomitant]

REACTIONS (2)
  - ANAL DISCOMFORT [None]
  - PAINFUL DEFAECATION [None]
